FAERS Safety Report 23913033 (Version 1)
Quarter: 2024Q2

REPORT INFORMATION
  Report Type: Spontaneous
  Country: VN (occurrence: VN)
  Receive Date: 20240529
  Receipt Date: 20240529
  Transmission Date: 20240715
  Serious: Yes (Hospitalization, Other)
  Sender: FDA-Public Use
  Company Number: VN-002147023-NVSC2024VN105511

PATIENT
  Age: 41 Year
  Sex: Male

DRUGS (4)
  1. CYCLOSPORINE [Suspect]
     Active Substance: CYCLOSPORINE
     Indication: Graft versus host disease
     Dosage: UNK
     Route: 065
  2. FLUDARABINE [Suspect]
     Active Substance: FLUDARABINE PHOSPHATE
     Indication: Condition aggravated
     Dosage: UNK
     Route: 065
  3. METHOTREXATE [Suspect]
     Active Substance: METHOTREXATE
     Indication: Graft versus host disease
     Dosage: UNK
     Route: 065
  4. MELPHALAN [Concomitant]
     Active Substance: MELPHALAN
     Indication: Product used for unknown indication
     Dosage: UNK
     Route: 065

REACTIONS (21)
  - Dizziness [Unknown]
  - Graft versus host disease [Unknown]
  - Erythema [Recovering/Resolving]
  - Pyrexia [Unknown]
  - Conjunctivitis [Unknown]
  - Diarrhoea [Recovering/Resolving]
  - Acute graft versus host disease in skin [Unknown]
  - Acute graft versus host disease in liver [Unknown]
  - Sepsis [Unknown]
  - Chronic graft versus host disease in skin [Unknown]
  - Chronic graft versus host disease in intestine [Unknown]
  - Acute graft versus host disease in intestine [Unknown]
  - Acute graft versus host disease in eye [Unknown]
  - Granulocytopenia [Unknown]
  - Skin lesion [Unknown]
  - Pain [Unknown]
  - Cytomegalovirus infection [Unknown]
  - Blood glucose increased [Unknown]
  - Blood pressure increased [Unknown]
  - Blood bilirubin increased [Unknown]
  - Hepatic enzyme abnormal [Unknown]
